FAERS Safety Report 5542414-2 (Version None)
Quarter: 2007Q4

REPORT INFORMATION
  Report Type: 
  Country: None (occurrence: None)
  Receive Date: 20071123
  Receipt Date: 20070918
  Transmission Date: 20080405
  Serious: Yes (Other)
  Sender: FDA-Public Use
  Company Number: US-JNJFOC-20070904246

PATIENT
  Age: 63 Year
  Sex: Female

DRUGS (3)
  1. LEVAQUIN [Suspect]
     Indication: SINUSITIS
     Dosage: 500 MG, 1 IN 1 DAY, ORAL
     Route: 048
     Dates: start: 20070613, end: 20070627
  2. PROZAC [Concomitant]
  3. ALEVE (NAPROXEN SODIUM) UNSPECIFIED [Concomitant]

REACTIONS (3)
  - JOINT STIFFNESS [None]
  - MUSCULAR WEAKNESS [None]
  - PAIN [None]
